FAERS Safety Report 24700952 (Version 1)
Quarter: 2024Q4

REPORT INFORMATION
  Report Type: Spontaneous
  Country: US (occurrence: US)
  Receive Date: 20241205
  Receipt Date: 20241205
  Transmission Date: 20250114
  Serious: Yes (Death, Life-Threatening, Hospitalization, Other)
  Sender: TORRENT PHARMA INC.
  Company Number: US-MLMSERVICE-20241119-PI261275-00246-1

PATIENT
  Age: 10 Month
  Sex: Male

DRUGS (1)
  1. OLANZAPINE [Suspect]
     Active Substance: OLANZAPINE
     Indication: Delirium
     Dosage: AS NECESSARY
     Route: 065

REACTIONS (13)
  - Neuroleptic malignant syndrome [Fatal]
  - Shock [Fatal]
  - Lactic acidosis [Fatal]
  - Hepatic function abnormal [Fatal]
  - Acute kidney injury [Fatal]
  - Disseminated intravascular coagulation [Fatal]
  - Brain injury [Fatal]
  - Generalised oedema [Fatal]
  - Acute myocardial infarction [Fatal]
  - Brain hypoxia [Fatal]
  - Autonomic nervous system imbalance [Fatal]
  - Multiple organ dysfunction syndrome [Fatal]
  - Cerebral infarction [Fatal]
